FAERS Safety Report 10904422 (Version 2)
Quarter: 2015Q1

REPORT INFORMATION
  Report Type: Spontaneous
  Country: FR (occurrence: None)
  Receive Date: 20150306
  Receipt Date: 20150317
  Transmission Date: 20150721
  Serious: Yes (Life-Threatening, Other)
  Sender: FDA-Public Use
  Company Number: FR2015GSK026499

PATIENT
  Age: 55 Year
  Sex: Male

DRUGS (17)
  1. FUNGIZONE (AMPHOTERICIN) [Concomitant]
  2. DIFFU K (POTASSIUM CHLORIDE) [Concomitant]
  3. TIVICAY [Suspect]
     Active Substance: DOLUTEGRAVIR SODIUM
     Indication: HIV INFECTION
     Dates: start: 20141216
  4. TRILEPTAL [Concomitant]
     Active Substance: OXCARBAZEPINE
  5. TRUVADA [Suspect]
     Active Substance: EMTRICITABINE\TENOFOVIR DISOPROXIL FUMARATE
  6. BRILIQUE (TICAGRELOR) [Concomitant]
     Active Substance: TICAGRELOR
  7. LASIX (FRUSEMIDE) [Concomitant]
  8. FLUCONAZOLE (FLUCONAZOLE) [Concomitant]
     Active Substance: FLUCONAZOLE
  9. PROCORALAN (IVABRADINE HYDROCHLORIDE) [Concomitant]
  10. INSPRA [Concomitant]
     Active Substance: EPLERENONE
  11. BEVITINE (THIAMINE HYDROCHLORIDE) [Concomitant]
  12. WELLVONE (ATOVAQUONE) [Concomitant]
     Active Substance: ATOVAQUONE
  13. CORTANCYL (PREDNISONE) [Concomitant]
     Active Substance: PREDNISONE
  14. LANTUS OPTIPEN (INATERMEDIATE/LONG-ACTING INSULIN) [Concomitant]
  15. NOVORAPID (INSULIN) [Concomitant]
  16. KARDEGIC (LYSINE ASPIRIN) [Concomitant]
  17. VALIUM [Concomitant]
     Active Substance: DIAZEPAM

REACTIONS (4)
  - Sepsis [None]
  - Dermatitis exfoliative [None]
  - Drug reaction with eosinophilia and systemic symptoms [None]
  - Respiratory distress [None]

NARRATIVE: CASE EVENT DATE: 20150106
